FAERS Safety Report 18658758 (Version 2)
Quarter: 2021Q2

REPORT INFORMATION
  Report Type: Spontaneous
  Country: US (occurrence: US)
  Receive Date: 20201223
  Receipt Date: 20210628
  Transmission Date: 20210717
  Serious: No
  Sender: FDA-Public Use
  Company Number: US-SAREPTA THERAPEUTICS INC.-SRP2020-000941

PATIENT
  Age: 5 Year
  Sex: Male
  Weight: 16.2 kg

DRUGS (2)
  1. VYONDYS 53 [Suspect]
     Active Substance: GOLODIRSEN
     Dosage: 500 MILLIGRAM, WEEKLY
     Route: 042
     Dates: start: 20201030
  2. VYONDYS 53 [Suspect]
     Active Substance: GOLODIRSEN
     Indication: DUCHENNE MUSCULAR DYSTROPHY
     Dosage: 500 MILLIGRAM, WEEKLY (EVERY FRIDAY)
     Route: 042
     Dates: start: 20200909, end: 20201023

REACTIONS (3)
  - No adverse event [Unknown]
  - Product preparation issue [Unknown]
  - Product dose omission issue [Recovered/Resolved]

NARRATIVE: CASE EVENT DATE: 20201023
